FAERS Safety Report 9956471 (Version 1)
Quarter: 2014Q1

REPORT INFORMATION
  Report Type: Report from Study
  Country: US (occurrence: US)
  Receive Date: 20140304
  Receipt Date: 20140304
  Transmission Date: 20141002
  Serious: No
  Sender: FDA-Public Use
  Company Number: US-ABBVIE-13P-163-1100293-00

PATIENT
  Age: 49 Year
  Sex: Male

DRUGS (6)
  1. HUMIRA [Suspect]
     Indication: ANKYLOSING SPONDYLITIS
     Dates: start: 2012
  2. MELOXICAM [Concomitant]
     Indication: ANKYLOSING SPONDYLITIS
     Dosage: DAILY
  3. CYCLOBENZAPRINE [Concomitant]
     Indication: ANKYLOSING SPONDYLITIS
     Dosage: DAILY
  4. RANITIDINE [Concomitant]
     Indication: GASTRIC DISORDER
  5. RANITIDINE [Concomitant]
     Indication: PROPHYLAXIS
  6. RANITIDINE [Concomitant]
     Indication: DRUG THERAPY

REACTIONS (3)
  - Wrong technique in drug usage process [Recovered/Resolved]
  - Incorrect route of drug administration [Recovered/Resolved]
  - Injection site haemorrhage [Recovered/Resolved]
